FAERS Safety Report 10096688 (Version 1)
Quarter: 2014Q2

REPORT INFORMATION
  Report Type: Spontaneous
  Country: US (occurrence: None)
  Receive Date: 20140421
  Receipt Date: 20140421
  Transmission Date: 20141212
  Serious: Yes (Other)
  Sender: FDA-Public Use
  Company Number: None

PATIENT
  Sex: Male

DRUGS (2)
  1. LAMICTAL XR [Suspect]
     Indication: EPILEPSY
     Route: 048
     Dates: start: 2011
  2. LAMICTAL XR [Suspect]
     Route: 048
     Dates: start: 2011

REACTIONS (3)
  - Convulsion [None]
  - Anticonvulsant drug level below therapeutic [None]
  - Product substitution issue [None]
